FAERS Safety Report 24233906 (Version 1)
Quarter: 2024Q3

REPORT INFORMATION
  Report Type: Spontaneous
  Country: US (occurrence: None)
  Receive Date: 20240821
  Receipt Date: 20240821
  Transmission Date: 20241016
  Serious: Yes (Hospitalization)
  Sender: Public
  Company Number: None

PATIENT
  Sex: Male

DRUGS (3)
  1. OPSUMIT [Suspect]
     Active Substance: MACITENTAN
     Indication: Pulmonary arterial hypertension
     Dosage: FREQUENCY : DAILY;?
     Route: 048
     Dates: start: 202407
  2. TADALAFIL [Concomitant]
  3. TYVASO DPI TITRAT KIT POW [Concomitant]

REACTIONS (4)
  - Headache [None]
  - Dyspnoea exertional [None]
  - Fatigue [None]
  - Respiratory distress [None]
